FAERS Safety Report 4579518-7 (Version None)
Quarter: 2005Q1

REPORT INFORMATION
  Report Type: 
  Country: None (occurrence: None)
  Receive Date: 20050210
  Receipt Date: 20050210
  Transmission Date: 20050727
  Serious: Yes (Disabling)
  Sender: FDA-Public Use
  Company Number: None

PATIENT
  Sex: Female
  Weight: 56.6996 kg

DRUGS (3)
  1. DEXAMETHASONE [Suspect]
     Indication: ANALGESIC EFFECT
     Dosage: UNK DOSE IN IN TRIGGER POINT MUSCLE KNOTS
     Route: 030
     Dates: start: 19980501, end: 19980701
  2. MARCAINE [Suspect]
  3. DOXYCYCLINE [Concomitant]

REACTIONS (6)
  - ARTHRALGIA [None]
  - BURNING SENSATION [None]
  - HYPOTONIA [None]
  - MUSCLE FIBROSIS [None]
  - MUSCLE RUPTURE [None]
  - MUSCLE TIGHTNESS [None]
